FAERS Safety Report 8187514-6 (Version None)
Quarter: 2012Q1

REPORT INFORMATION
  Report Type: 
  Country: None (occurrence: None)
  Receive Date: 20120217
  Receipt Date: 20111003
  Transmission Date: 20120608
  Serious: Yes (Other)
  Sender: FDA-Public Use
  Company Number: AUR-APL-2011-05345

PATIENT
  Age: 67 Year
  Sex: Female
  Weight: 58.9676 kg

DRUGS (6)
  1. CARVEDILOL [Concomitant]
  2. MULTIVITAMIN (VIGRAN) [Concomitant]
  3. AMLODIPINE [Concomitant]
  4. FOSINOPRIL SODIUM [Concomitant]
  5. ZENPEP (PANCRELIPASE) [Concomitant]
  6. SIMVASTATIN [Suspect]
     Indication: BLOOD CHOLESTEROL INCREASED
     Dosage: 40 MG (40 MG, 1 IN 1 D), ORAL
     Route: 048
     Dates: start: 20030101

REACTIONS (3)
  - DIARRHOEA [None]
  - VOMITING [None]
  - ABDOMINAL PAIN UPPER [None]
